FAERS Safety Report 4459481-X (Version None)
Quarter: 2004Q3

REPORT INFORMATION
  Report Type: 
  Country: None (occurrence: None)
  Receive Date: 20040927
  Receipt Date: 20040920
  Transmission Date: 20050211
  Serious: Yes (Other)
  Sender: FDA-Public Use
  Company Number: PHEH2004US10148

PATIENT
  Sex: Female

DRUGS (1)
  1. SANSERT [Suspect]
     Indication: HEADACHE
     Dates: start: 20020101

REACTIONS (4)
  - AGGRESSION [None]
  - CRYING [None]
  - HEADACHE [None]
  - SUICIDAL IDEATION [None]
